FAERS Safety Report 4612409-1 (Version None)
Quarter: 2005Q1

REPORT INFORMATION
  Report Type: 
  Country: None (occurrence: None)
  Receive Date: 20050316
  Receipt Date: 20050302
  Transmission Date: 20050727
  Serious: Yes (Congenital Anomaly)
  Sender: FDA-Public Use
  Company Number: S04-USA-00905-02

PATIENT
  Sex: Male
  Weight: 2.67 kg

DRUGS (15)
  1. CELEXA [Suspect]
     Indication: DEPRESSION
     Dosage: 30 MG QD TRANSPLACENTAL
     Route: 064
     Dates: end: 20040517
  2. CELEXA [Suspect]
     Indication: DEPRESSION
     Dosage: 30 MG QD BF
     Route: 063
     Dates: start: 20040517, end: 20040101
  3. CELEXA [Suspect]
     Indication: DEPRESSION
     Dosage: 40 MG QD BF
     Route: 063
     Dates: start: 20040101
  4. WELLBUTRIN [Concomitant]
  5. TEMAZEPAM [Concomitant]
  6. TYLENOL [Concomitant]
  7. ORTHO TRI-CYCLEN [Concomitant]
     Dates: end: 20030101
  8. PRENATAL VITAMINS [Concomitant]
  9. CALCIUM WITH VITAMIN D [Concomitant]
  10. FIBER [Concomitant]
  11. PHENERGAN [Concomitant]
     Dates: start: 20031027
  12. SPINAL ANESTHESIA [Concomitant]
     Dates: start: 20040517, end: 20040517
  13. SLOW FE [Concomitant]
     Dates: start: 20040305
  14. LAUGHING GAS [Concomitant]
     Dates: start: 20030301, end: 20030901
  15. LOCAL ANESTHESIA [Concomitant]
     Dates: start: 20030901, end: 20030901

REACTIONS (10)
  - AMNIOTIC FLUID VOLUME DECREASED [None]
  - BREECH PRESENTATION [None]
  - CAESAREAN SECTION [None]
  - COMPLICATIONS OF MATERNAL EXPOSURE TO THERAPEUTIC DRUGS [None]
  - DRUG EXPOSURE DURING PREGNANCY [None]
  - FOETAL GROWTH RETARDATION [None]
  - FOETAL HEART RATE DECREASED [None]
  - HIP DYSPLASIA [None]
  - JAUNDICE NEONATAL [None]
  - ULTRASOUND SCAN ABNORMAL [None]
